FAERS Safety Report 7125020-8 (Version None)
Quarter: 2010Q4

REPORT INFORMATION
  Report Type: 
  Country: None (occurrence: None)
  Receive Date: 20101129
  Receipt Date: 20101122
  Transmission Date: 20110411
  Serious: Yes (Other)
  Sender: FDA-Public Use
  Company Number: US-JNJCH-2010026948

PATIENT
  Age: 67 Year
  Sex: Female
  Weight: 50.3 kg

DRUGS (1)
  1. ROLAIDS [Suspect]
     Indication: DYSPEPSIA
     Dosage: TEXT:TWO TABLETS ONCE PER DAY
     Route: 048
     Dates: start: 20101108, end: 20101110

REACTIONS (1)
  - TOOTH FRACTURE [None]
